FAERS Safety Report 4308227-4 (Version None)
Quarter: 2004Q1

REPORT INFORMATION
  Report Type: 
  Country: None (occurrence: None)
  Receive Date: 20040301
  Receipt Date: 20030908
  Transmission Date: 20041129
  Serious: No
  Sender: FDA-Public Use
  Company Number: US-BRISTOL-MYERS SQUIBB COMPANY-12376786

PATIENT
  Age: 73 Year
  Sex: Female

DRUGS (4)
  1. GLUCOPHAGE [Suspect]
     Indication: DIABETES MELLITUS
     Dosage: DURATION OF THERAPY:  ^SEVERAL YEARS^
     Route: 048
     Dates: end: 20020801
  2. TENORMIN [Concomitant]
  3. K-DUR 10 [Concomitant]
  4. EVISTA [Concomitant]

REACTIONS (2)
  - ANAL DISCOMFORT [None]
  - FAECAL INCONTINENCE [None]
